FAERS Safety Report 5142559-5 (Version None)
Quarter: 2006Q4

REPORT INFORMATION
  Report Type: 
  Country: None (occurrence: None)
  Receive Date: 20061031
  Receipt Date: 20061031
  Transmission Date: 20070319
  Serious: Yes (Hospitalization)
  Sender: FDA-Public Use
  Company Number: None

PATIENT
  Sex: Male
  Weight: 16.8 kg

DRUGS (10)
  1. CYTARABINE [Suspect]
     Dosage: 30 MG
  2. DEXAMETHASONE TAB [Suspect]
     Dosage: 30.4 MG
  3. PEG-L-ASPARAGINASE (K-H) [Suspect]
     Dosage: 1400 UNIT
  4. VINCRISTINE SULFATE [Suspect]
     Dosage: .8 MG
  5. CEFAPIME [Concomitant]
  6. FLAGYL [Concomitant]
  7. FLUCONAZOLE [Concomitant]
  8. SEPTRA [Concomitant]
  9. TOBRAMYCIN [Concomitant]
  10. VANCOMYCIN [Concomitant]

REACTIONS (8)
  - ABDOMINAL DISTENSION [None]
  - CELLULITIS [None]
  - DISCOMFORT [None]
  - GASTROINTESTINAL DISORDER [None]
  - HEPATOMEGALY [None]
  - PANCYTOPENIA [None]
  - PYREXIA [None]
  - TACHYCARDIA [None]
